FAERS Safety Report 8430517-4 (Version None)
Quarter: 2012Q2

REPORT INFORMATION
  Report Type: 
  Country: None (occurrence: None)
  Receive Date: 20120612
  Receipt Date: 20120607
  Transmission Date: 20120825
  Serious: Yes (Hospitalization)
  Sender: FDA-Public Use
  Company Number: US-GLAXOSMITHKLINE-A0804241A

PATIENT
  Age: 57 Year
  Sex: Male
  Weight: 111.8 kg

DRUGS (7)
  1. AVANDAMET [Suspect]
     Indication: DIABETES MELLITUS
     Route: 048
     Dates: start: 20031230, end: 20031230
  2. TOPROL-XL [Concomitant]
  3. AVANDIA [Suspect]
     Indication: DIABETES MELLITUS
     Dosage: 8MG PER DAY
     Route: 048
     Dates: start: 20040302, end: 20080324
  4. ENALAPRIL MALEATE [Concomitant]
  5. NORVASC [Concomitant]
  6. HYDROCHLOROTHIAZIDE [Concomitant]
  7. METFORMIN HCL [Concomitant]

REACTIONS (6)
  - AORTIC VALVE INCOMPETENCE [None]
  - TRAUMATIC LUNG INJURY [None]
  - CARDIAC DISORDER [None]
  - ENDOCARDITIS BACTERIAL [None]
  - CARDIAC FAILURE CONGESTIVE [None]
  - TRANSIENT ISCHAEMIC ATTACK [None]
